FAERS Safety Report 5084026-3 (Version None)
Quarter: 2006Q3

REPORT INFORMATION
  Report Type: 
  Country: None (occurrence: None)
  Receive Date: 20060726
  Receipt Date: 20060221
  Transmission Date: 20061208
  Serious: Yes (Hospitalization, Other)
  Sender: FDA-Public Use
  Company Number: USA-2006-0023615

PATIENT
  Age: 76 Year
  Sex: Male

DRUGS (1)
  1. MS CONTIN [Suspect]
     Indication: HEADACHE
     Dosage: 30 MG, SEE TEXT, ORAL
     Route: 048
     Dates: start: 19940101, end: 20051226

REACTIONS (5)
  - ANXIETY [None]
  - CONSTIPATION [None]
  - DRUG DEPENDENCE [None]
  - DRUG WITHDRAWAL SYNDROME [None]
  - GASTROINTESTINAL OBSTRUCTION [None]
